FAERS Safety Report 6495210-6 (Version None)
Quarter: 2009Q4

REPORT INFORMATION
  Report Type: 
  Country: None (occurrence: None)
  Receive Date: 20091214
  Receipt Date: 20090926
  Transmission Date: 20100525
  Serious: No
  Sender: FDA-Public Use
  Company Number: US-BRISTOL-MYERS SQUIBB COMPANY-14623623

PATIENT
  Age: 42 Year
  Sex: Male

DRUGS (5)
  1. ABILIFY [Suspect]
     Indication: BIPOLAR DISORDER
     Dates: end: 20050101
  2. ABILIFY [Suspect]
     Indication: PSYCHOTIC DISORDER
     Dates: end: 20050101
  3. ABILIFY [Suspect]
     Indication: ANXIETY
     Dates: end: 20050101
  4. RISPERDAL [Concomitant]
  5. SEROQUEL [Concomitant]

REACTIONS (7)
  - AKATHISIA [None]
  - DRUG INEFFECTIVE [None]
  - DYSARTHRIA [None]
  - FEELING ABNORMAL [None]
  - MUSCLE SPASMS [None]
  - MUSCULOSKELETAL STIFFNESS [None]
  - THINKING ABNORMAL [None]
